FAERS Safety Report 6521847-1 (Version None)
Quarter: 2009Q4

REPORT INFORMATION
  Report Type: 
  Country: None (occurrence: None)
  Receive Date: 20091229
  Receipt Date: 20091229
  Transmission Date: 20100525
  Serious: Yes (Other)
  Sender: FDA-Public Use
  Company Number: None

PATIENT
  Age: 48 Year
  Sex: Female
  Weight: 68.9467 kg

DRUGS (4)
  1. KY INTENSE AROUSAL GEL [Suspect]
     Dates: start: 20090801
  2. ADDERALL 10 [Concomitant]
  3. HYDROCORTISONE [Concomitant]
  4. ZOVIRAX [Concomitant]

REACTIONS (6)
  - ABDOMINAL DISCOMFORT [None]
  - CAUDA EQUINA SYNDROME [None]
  - CAUSTIC INJURY [None]
  - INJURY [None]
  - VAGINAL DISORDER [None]
  - VULVOVAGINAL DISCOMFORT [None]
